FAERS Safety Report 13667952 (Version 1)
Quarter: 2017Q2

REPORT INFORMATION
  Report Type: Report from Study
  Country: None (occurrence: DE)
  Receive Date: 20170620
  Receipt Date: 20170620
  Transmission Date: 20170830
  Serious: Yes (Hospitalization)
  Sender: FDA-Public Use
  Company Number: DE-ABBVIE-17K-062-2007123-00

PATIENT
  Age: 44 Year
  Sex: Female
  Weight: 60 kg

DRUGS (2)
  1. HUMIRA [Suspect]
     Active Substance: ADALIMUMAB
     Indication: PSORIASIS
     Route: 058
  2. HUMIRA [Suspect]
     Active Substance: ADALIMUMAB
     Indication: PSORIATIC ARTHROPATHY

REACTIONS (6)
  - Cervicobrachial syndrome [Unknown]
  - Kyphosis [Unknown]
  - Intervertebral disc protrusion [Unknown]
  - Osteochondrosis [Unknown]
  - Spinal osteoarthritis [Unknown]
  - Spinal pain [Unknown]

NARRATIVE: CASE EVENT DATE: 20161220
